FAERS Safety Report 25383917 (Version 1)
Quarter: 2025Q2

REPORT INFORMATION
  Report Type: Spontaneous
  Country: US (occurrence: US)
  Receive Date: 20250602
  Receipt Date: 20250602
  Transmission Date: 20250716
  Serious: Yes (Other)
  Sender: CIPLA
  Company Number: US-CIPLA (EU) LIMITED-2025US06448

PATIENT

DRUGS (5)
  1. SERTRALINE [Suspect]
     Active Substance: SERTRALINE HYDROCHLORIDE
     Indication: Anxiety
     Dosage: 200 MILLIGRAM, BID (TWO 100MG TABLETS TWICE A DAY)
     Route: 048
  2. CHLORPROMAZINE [Concomitant]
     Active Substance: CHLORPROMAZINE
     Indication: Schizophrenia
     Dosage: 25 MILLIGRAM, BID (ABOUT A YEAR)
     Route: 065
     Dates: start: 2024
  3. ALBUTEROL [Concomitant]
     Active Substance: ALBUTEROL
     Indication: Asthma
     Dosage: UNK, BID (FOR 5 YEARS OR LONGER, DIDN^T KNOW THE MANUFACTURER)
     Route: 065
  4. IRON [Concomitant]
     Active Substance: IRON
     Indication: Anaemia
     Dosage: 650 MILLIGRAM, QD FOR 2 MONTHS (65MG ELEMENTAL IRON WITH VITAMIN C / ONCE A DAY)
     Route: 065
     Dates: start: 202503
  5. ASCORBIC ACID [Concomitant]
     Active Substance: ASCORBIC ACID
     Indication: Product used for unknown indication
     Route: 065

REACTIONS (1)
  - Anaphylactic shock [Recovered/Resolved]

NARRATIVE: CASE EVENT DATE: 20250512
